FAERS Safety Report 7647410-7 (Version None)
Quarter: 2011Q3

REPORT INFORMATION
  Report Type: 
  Country: None (occurrence: None)
  Receive Date: 20110726
  Receipt Date: 20110720
  Transmission Date: 20111222
  Serious: Yes (Disabling, Other)
  Sender: FDA-Public Use
  Company Number: 2011SP031807

PATIENT
  Sex: Female

DRUGS (10)
  1. REMERON [Suspect]
     Indication: DEPRESSION
     Dosage: SEE IMAGE, PO
     Route: 048
     Dates: start: 20100727, end: 20110217
  2. REMERON [Suspect]
     Indication: DEPRESSION
     Dosage: SEE IMAGE, PO
     Route: 048
     Dates: start: 20100218, end: 20110705
  3. REMERON [Suspect]
     Indication: DEPRESSION
     Dosage: SEE IMAGE, PO
     Route: 048
     Dates: start: 20100709, end: 20100721
  4. REMERON [Suspect]
     Indication: DEPRESSION
     Dosage: SEE IMAGE, PO
     Route: 048
     Dates: start: 20100722, end: 20100726
  5. REMERON [Suspect]
     Indication: DEPRESSION
     Dosage: SEE IMAGE, PO
     Route: 048
     Dates: start: 20110706, end: 20110712
  6. REMERON [Suspect]
     Indication: DEPRESSION
     Dosage: SEE IMAGE, PO
     Route: 048
     Dates: start: 20110713
  7. RISPERDAL [Suspect]
     Indication: PRODUCT USED FOR UNKNOWN INDICATION
     Dosage: SEE IMAGE: PO
     Route: 048
     Dates: start: 20100722, end: 20101021
  8. RISPERDAL [Suspect]
     Indication: PRODUCT USED FOR UNKNOWN INDICATION
     Dosage: SEE IMAGE: PO
     Route: 048
     Dates: start: 20101022, end: 20101112
  9. RISPERDAL [Suspect]
     Indication: PRODUCT USED FOR UNKNOWN INDICATION
     Dosage: SEE IMAGE: PO
     Route: 048
     Dates: start: 20110218, end: 20110304
  10. RISPERDAL [Suspect]
     Indication: PRODUCT USED FOR UNKNOWN INDICATION
     Dosage: SEE IMAGE: PO
     Route: 048
     Dates: start: 20101113, end: 20110217

REACTIONS (6)
  - PARKINSONISM [None]
  - ORTHOSTATIC HYPOTENSION [None]
  - DYSKINESIA [None]
  - ASPARTATE AMINOTRANSFERASE INCREASED [None]
  - ALANINE AMINOTRANSFERASE INCREASED [None]
  - GAMMA-GLUTAMYLTRANSFERASE INCREASED [None]
